FAERS Safety Report 6931334-4 (Version None)
Quarter: 2010Q3

REPORT INFORMATION
  Report Type: 
  Country: None (occurrence: None)
  Receive Date: 20100816
  Receipt Date: 20100621
  Transmission Date: 20110219
  Serious: Yes (Other)
  Sender: FDA-Public Use
  Company Number: DKLU1064292

PATIENT
  Age: 28 Year
  Sex: Female

DRUGS (13)
  1. TRANXENE [Suspect]
     Indication: PRODUCT USED FOR UNKNOWN INDICATION
  2. AKINETON [Suspect]
     Indication: PRODUCT USED FOR UNKNOWN INDICATION
     Dosage: 4 MG MILLIGRAM(S), DAY 24, 2 MG MILLIGRAM(S), DAY 26, 4 MG MILLIGRAM(S), DAY 29
     Dates: start: 20080413, end: 20080413
  3. AKINETON [Suspect]
     Indication: PRODUCT USED FOR UNKNOWN INDICATION
     Dosage: 4 MG MILLIGRAM(S), DAY 24, 2 MG MILLIGRAM(S), DAY 26, 4 MG MILLIGRAM(S), DAY 29
     Dates: start: 20080415, end: 20080415
  4. AKINETON [Suspect]
     Indication: PRODUCT USED FOR UNKNOWN INDICATION
     Dosage: 4 MG MILLIGRAM(S), DAY 24, 2 MG MILLIGRAM(S), DAY 26, 4 MG MILLIGRAM(S), DAY 29
     Dates: start: 20080418, end: 20080418
  5. CANNABIS (CANNABIS SATIVA) [Suspect]
     Indication: PRODUCT USED FOR UNKNOWN INDICATION
  6. LORAZEPAM [Suspect]
     Indication: PRODUCT USED FOR UNKNOWN INDICATION
  7. FLURAZEPAM HCL [Suspect]
     Indication: PRODUCT USED FOR UNKNOWN INDICATION
  8. MIANSERIN HYDROCHLORIDE (MIANSERIN HYDROCHLORIDE) [Suspect]
     Indication: PRODUCT USED FOR UNKNOWN INDICATION
  9. PROMETHAZINE [Suspect]
     Indication: PRODUCT USED FOR UNKNOWN INDICATION
  10. ZUCLOPENTHIXOL ACETATE (ZUCLOPENTHIXOL) [Suspect]
     Indication: PRODUCT USED FOR UNKNOWN INDICATION
  11. RISPERIDONE [Suspect]
  12. ZOLPIDEM [Concomitant]
  13. CETIRIZINE HYDROCHLORIDE (CETIRIZINE HYDROCHLORIDE) [Concomitant]

REACTIONS (2)
  - ABORTION SPONTANEOUS [None]
  - DRUG EXPOSURE DURING PREGNANCY [None]
